FAERS Safety Report 7585748-2 (Version None)
Quarter: 2011Q3

REPORT INFORMATION
  Report Type: 
  Country: None (occurrence: None)
  Receive Date: 20110701
  Receipt Date: 20110622
  Transmission Date: 20111222
  Serious: Yes (Hospitalization)
  Sender: FDA-Public Use
  Company Number: DE-ASTRAZENECA-2011SE37748

PATIENT
  Sex: Male

DRUGS (7)
  1. CALCIUM CARBONATE [Concomitant]
     Indication: MINERAL SUPPLEMENTATION
     Route: 048
  2. ACETAMINOPHEN [Concomitant]
     Indication: INFLUENZA
     Dosage: AS REQUIRED
     Route: 048
     Dates: start: 20110531
  3. LEVOTHYROXINE SODIUM [Concomitant]
     Indication: SUPPLEMENTATION THERAPY
     Route: 048
     Dates: start: 20110526
  4. IBUPROFEN [Concomitant]
     Indication: INFLUENZA
     Dosage: AS REQUIRED
     Route: 048
     Dates: start: 20110602
  5. VANDETANIB [Suspect]
     Indication: THYROID CANCER
     Route: 048
     Dates: start: 20110512
  6. ROCALTROL [Concomitant]
     Indication: MINERAL SUPPLEMENTATION
     Route: 048
  7. ASPERIN COMPLEX [Concomitant]
     Indication: INFLUENZA
     Dosage: AS REQUIRED
     Route: 048
     Dates: start: 20110531

REACTIONS (1)
  - APPENDICITIS [None]
